FAERS Safety Report 5082069-7 (Version None)
Quarter: 2006Q3

REPORT INFORMATION
  Report Type: 
  Country: None (occurrence: None)
  Receive Date: 20060811
  Receipt Date: 20060729
  Transmission Date: 20061208
  Serious: Yes (Hospitalization)
  Sender: FDA-Public Use
  Company Number: 2006092984

PATIENT
  Age: 70 Year
  Sex: Male
  Weight: 59 kg

DRUGS (3)
  1. SUTENT [Suspect]
     Indication: GASTROINTESTINAL STROMAL TUMOUR
     Dosage: 50 MG (50 MG, 1 IN 1 D), ORAL
     Route: 048
     Dates: start: 20060619, end: 20060717
  2. PREDNISONE TAB [Concomitant]
  3. FENTANYL [Concomitant]

REACTIONS (1)
  - ASCITES [None]
